FAERS Safety Report 22781443 (Version 4)
Quarter: 2023Q4

REPORT INFORMATION
  Report Type: Report from Study
  Country: MX (occurrence: MX)
  Receive Date: 20230803
  Receipt Date: 20231207
  Transmission Date: 20240109
  Serious: Yes (Other)
  Sender: FDA-Public Use
  Company Number: MX-002147023-NVSC2023MX125961

PATIENT
  Sex: Male

DRUGS (3)
  1. TASIGNA [Suspect]
     Active Substance: NILOTINIB
     Indication: Chronic myeloid leukaemia
     Dosage: 4 DOSAGE FORM, QD (2 IN THE MORNING AND 2 IN THE AFTERNOON)
     Route: 048
  2. TASIGNA [Suspect]
     Active Substance: NILOTINIB
     Dosage: UNK
     Route: 048
  3. VITAMINS NOS [Concomitant]
     Active Substance: VITAMINS
     Indication: Blood disorder
     Dosage: UNK
     Route: 065

REACTIONS (26)
  - Cataract [Unknown]
  - Glaucoma [Unknown]
  - Pulmonary pain [Unknown]
  - Multi-organ disorder [Unknown]
  - Mood altered [Unknown]
  - Back pain [Unknown]
  - Pain in extremity [Unknown]
  - Nausea [Unknown]
  - Fatigue [Unknown]
  - Fall [Unknown]
  - Platelet count decreased [Recovering/Resolving]
  - Malaise [Unknown]
  - Irritability [Unknown]
  - Social fear [Unknown]
  - Ocular discomfort [Unknown]
  - Abdominal hernia [Unknown]
  - Feeling of despair [Unknown]
  - Visual impairment [Unknown]
  - Memory impairment [Unknown]
  - Anxiety [Unknown]
  - Headache [Unknown]
  - Pain [Unknown]
  - Inguinal hernia [Unknown]
  - Dizziness [Unknown]
  - Abdominal pain upper [Unknown]
  - Abdominal pain [Unknown]
